FAERS Safety Report 7507525-0 (Version None)
Quarter: 2011Q2

REPORT INFORMATION
  Report Type: 
  Country: None (occurrence: None)
  Receive Date: 20110526
  Receipt Date: 20110105
  Transmission Date: 20111010
  Serious: No
  Sender: FDA-Public Use
  Company Number: US-MYLANLABS-2011S1000525

PATIENT
  Sex: Female

DRUGS (2)
  1. FENTANYL-100 [Suspect]
     Indication: PAIN
     Dosage: CHANGED Q72H
     Route: 062
     Dates: start: 20101201
  2. ZOLPIDEM TARTRATE [Interacting]
     Indication: INSOMNIA
     Route: 048
     Dates: start: 20101201

REACTIONS (4)
  - DRUG INTERACTION [None]
  - WRONG TECHNIQUE IN DRUG USAGE PROCESS [None]
  - LOSS OF CONSCIOUSNESS [None]
  - FALL [None]
